FAERS Safety Report 12041360 (Version 2)
Quarter: 2016Q3

REPORT INFORMATION
  Report Type: Spontaneous
  Country: US (occurrence: US)
  Receive Date: 20160208
  Receipt Date: 20160708
  Transmission Date: 20161109
  Serious: Yes (Hospitalization, Other)
  Sender: FDA-Public Use
  Company Number: US-PFIZER INC-2016070054

PATIENT
  Age: 50 Year
  Sex: Male

DRUGS (1)
  1. DEPO-TESTOSTERONE [Suspect]
     Active Substance: TESTOSTERONE CYPIONATE
     Indication: HORMONE REPLACEMENT THERAPY
     Dosage: UNK
     Dates: start: 201308

REACTIONS (5)
  - Gastrooesophageal reflux disease [Unknown]
  - Myocardial infarction [Unknown]
  - Fatigue [Not Recovered/Not Resolved]
  - Chest pain [Unknown]
  - Cardiovascular disorder [Not Recovered/Not Resolved]

NARRATIVE: CASE EVENT DATE: 201310
